FAERS Safety Report 7759245-5 (Version None)
Quarter: 2011Q3

REPORT INFORMATION
  Report Type: 
  Country: None (occurrence: None)
  Receive Date: 20110919
  Receipt Date: 20110908
  Transmission Date: 20111222
  Serious: Yes (Other)
  Sender: FDA-Public Use
  Company Number: HR-ASTRAZENECA-2011SE54312

PATIENT
  Age: 74 Year
  Sex: Female

DRUGS (1)
  1. PLENDIL [Suspect]
     Route: 048
     Dates: start: 20110801, end: 20110814

REACTIONS (3)
  - FATIGUE [None]
  - ASTHENIA [None]
  - VISION BLURRED [None]
